FAERS Safety Report 5272107-0 (Version None)
Quarter: 2007Q1

REPORT INFORMATION
  Report Type: 
  Country: None (occurrence: None)
  Receive Date: 20070320
  Receipt Date: 20070320
  Transmission Date: 20070707
  Serious: No
  Sender: FDA-Public Use
  Company Number: None

PATIENT
  Age: 51 Year
  Sex: Male
  Weight: 88.4514 kg

DRUGS (1)
  1. VIREAD [Suspect]
     Indication: HIV INFECTION
     Dosage: ONCE DAILY PO
     Route: 048
     Dates: start: 20040106, end: 20040621

REACTIONS (2)
  - CARDIAC FAILURE [None]
  - RENAL FAILURE [None]
